FAERS Safety Report 22098702 (Version 1)
Quarter: 2023Q1

REPORT INFORMATION
  Report Type: Spontaneous
  Country: FR (occurrence: None)
  Receive Date: 20230315
  Receipt Date: 20230315
  Transmission Date: 20230417
  Serious: Yes (Other)
  Sender: FDA-Public Use
  Company Number: None

PATIENT
  Age: 15 Month
  Sex: Female

DRUGS (2)
  1. ACETAZOLAMIDE [Suspect]
     Active Substance: ACETAZOLAMIDE
     Indication: Hypervolaemia
     Route: 065
  2. FUROSEMIDE [Suspect]
     Active Substance: FUROSEMIDE
     Indication: Hypervolaemia
     Route: 065

REACTIONS (8)
  - Treatment failure [None]
  - Pneumonia [None]
  - Sepsis [None]
  - Status epilepticus [None]
  - Pseudomonas aeruginosa meningitis [None]
  - Continuous haemodiafiltration [None]
  - Drug resistance [None]
  - Weight increased [None]
